FAERS Safety Report 23703678 (Version 1)
Quarter: 2024Q2

REPORT INFORMATION
  Report Type: Spontaneous
  Country: US (occurrence: US)
  Receive Date: 20240403
  Receipt Date: 20240403
  Transmission Date: 20240716
  Serious: No
  Sender: FDA-Public Use
  Company Number: US-PFIZER INC-202400075770

PATIENT
  Age: 71 Year
  Sex: Male

DRUGS (1)
  1. INLYTA [Suspect]
     Active Substance: AXITINIB
     Dosage: INLYTA TWICE DAILY ORALLY
     Route: 048
     Dates: start: 20231022

REACTIONS (4)
  - Neoplasm progression [Unknown]
  - Oral pain [Unknown]
  - Noninfective gingivitis [Unknown]
  - Ingrowing nail [Unknown]
